FAERS Safety Report 7359011 (Version 4)
Quarter: 2021Q2

REPORT INFORMATION
  Report Type: Spontaneous
  Country: PL (occurrence: PL)
  Receive Date: 20100419
  Receipt Date: 20210624
  Transmission Date: 20210717
  Serious: Yes (Death, Hospitalization, Other)
  Sender: FDA-Public Use
  Company Number: PHHY2010PL22378

PATIENT
  Age: 30 Year
  Sex: Male

DRUGS (2)
  1. IMATINIB MESILATE [Suspect]
     Active Substance: IMATINIB MESYLATE
     Dosage: 300 MG, QD
     Route: 065
     Dates: start: 200411
  2. IMATINIB MESILATE [Suspect]
     Active Substance: IMATINIB MESYLATE
     Indication: PHILADELPHIA POSITIVE CHRONIC MYELOID LEUKAEMIA
     Dosage: 400 MG, QD
     Route: 065
     Dates: start: 200305

REACTIONS (12)
  - Second primary malignancy [Fatal]
  - Metastases to lung [Fatal]
  - Neurological symptom [Not Recovered/Not Resolved]
  - Testicular germ cell tumour mixed stage I [Fatal]
  - Confusional state [Fatal]
  - Cytopenia [Not Recovered/Not Resolved]
  - General physical health deterioration [Fatal]
  - Somnolence [Fatal]
  - Testicular cancer metastatic [Unknown]
  - Nausea [Fatal]
  - Metastases to central nervous system [Fatal]
  - Headache [Fatal]

NARRATIVE: CASE EVENT DATE: 2004
